FAERS Safety Report 9245870 (Version 2)
Quarter: 2013Q3

REPORT INFORMATION
  Report Type: Spontaneous
  Country: US (occurrence: US)
  Receive Date: 20130422
  Receipt Date: 20130724
  Transmission Date: 20140515
  Serious: No
  Sender: FDA-Public Use
  Company Number: US-BRISTOL-MYERS SQUIBB COMPANY-17483934

PATIENT
  Age: 81 Year
  Sex: Female

DRUGS (4)
  1. ELIQUIS [Suspect]
     Indication: ATRIAL FLUTTER
     Route: 048
     Dates: start: 20130305, end: 20130306
  2. SOTALOL [Concomitant]
  3. ARMOUR THYROID [Concomitant]
  4. ASPIRIN [Concomitant]

REACTIONS (1)
  - Pain [Recovered/Resolved]
